FAERS Safety Report 13416136 (Version 3)
Quarter: 2017Q3

REPORT INFORMATION
  Report Type: Spontaneous
  Country: GB (occurrence: GB)
  Receive Date: 20170406
  Receipt Date: 20170920
  Transmission Date: 20171127
  Serious: Yes (Death, Other)
  Sender: FDA-Public Use
  Company Number: GB-JNJFOC-20170404019

PATIENT
  Sex: Female

DRUGS (20)
  1. SALINE [Concomitant]
     Active Substance: SODIUM CHLORIDE
     Route: 065
  2. DOXAZOCIN [Concomitant]
     Active Substance: DOXAZOSIN MESYLATE
     Route: 065
  3. DOMPERIDONE [Concomitant]
     Active Substance: DOMPERIDONE
     Route: 065
  4. AZITHROMYCIN ANHYDROUS. [Concomitant]
     Active Substance: AZITHROMYCIN ANHYDROUS
     Route: 065
  5. XARELTO [Suspect]
     Active Substance: RIVAROXABAN
     Indication: EMBOLISM VENOUS
     Route: 051
     Dates: end: 20161002
  6. AMANTADINE. [Concomitant]
     Active Substance: AMANTADINE HYDROCHLORIDE
     Route: 065
  7. GLUCOSE W/POTASSIUM CHLORIDE/SODIUM CITRATE [Concomitant]
     Route: 065
  8. LAMOTRIGINE. [Concomitant]
     Active Substance: LAMOTRIGINE
     Route: 065
  9. LOPERAMIDE [Concomitant]
     Active Substance: LOPERAMIDE
     Route: 065
  10. MYCOPHENOLATE MOFETIL. [Concomitant]
     Active Substance: MYCOPHENOLATE MOFETIL
     Route: 065
  11. BACLOFEN. [Concomitant]
     Active Substance: BACLOFEN
     Route: 065
  12. LANSOPRAZOLE. [Concomitant]
     Active Substance: LANSOPRAZOLE
     Route: 065
  13. ASPIRIN. [Concomitant]
     Active Substance: ASPIRIN
     Route: 065
  14. TACROLIMUS. [Concomitant]
     Active Substance: TACROLIMUS
     Route: 065
  15. XARELTO [Suspect]
     Active Substance: RIVAROXABAN
     Indication: DEEP VEIN THROMBOSIS
     Dosage: DURATION OF ADMINISTRATION WAS 3 WEEKS
     Route: 051
     Dates: start: 20160811
  16. TRAMADOL. [Concomitant]
     Active Substance: TRAMADOL
     Route: 065
  17. XARELTO [Suspect]
     Active Substance: RIVAROXABAN
     Indication: DEEP VEIN THROMBOSIS
     Route: 051
     Dates: end: 20161002
  18. XARELTO [Suspect]
     Active Substance: RIVAROXABAN
     Indication: EMBOLISM VENOUS
     Dosage: DURATION OF ADMINISTRATION WAS 3 WEEKS
     Route: 051
     Dates: start: 20160811
  19. ONDANSETRON [Concomitant]
     Active Substance: ONDANSETRON
     Route: 065
  20. FORCEVAL [Concomitant]
     Active Substance: FOLIC ACID\IRON\MINERALS\VITAMINS
     Route: 065

REACTIONS (3)
  - Drug ineffective [Unknown]
  - Incorrect route of drug administration [Unknown]
  - Deep vein thrombosis [Unknown]
